FAERS Safety Report 5354686-8 (Version None)
Quarter: 2007Q2

REPORT INFORMATION
  Report Type: 
  Country: None (occurrence: None)
  Receive Date: 20070608
  Receipt Date: 20070524
  Transmission Date: 20071010
  Serious: Yes (Hospitalization)
  Sender: FDA-Public Use
  Company Number: 156787ISR

PATIENT
  Age: 8 Year
  Sex: Male

DRUGS (9)
  1. VINCRISTINE [Suspect]
     Indication: LYMPHOMA
     Dosage: 1.5 MG (ON DAY 1, 8, 15, 22)
     Route: 042
     Dates: start: 20070404, end: 20070425
  2. METHOTREXATE [Suspect]
     Indication: LYMPHOMA
     Dosage: 12 MG (ON DAY 2 AND 26)
     Route: 037
     Dates: start: 20070405, end: 20070405
  3. DAUNORUBICIN HCL [Suspect]
     Indication: LYMPHOMA
     Dosage: 30 MG (GRAM,ON DAY 1,8,15 AND 22)
     Route: 042
     Dates: start: 20070404, end: 20070425
  4. ASPARAGINASE [Suspect]
     Indication: LYMPHOMA
     Dosage: 10000 IU (ON DAY 4, 8, 11)
     Dates: end: 20070420
  5. METHYLPREDNISOLONE [Suspect]
     Indication: LYMPHOMA
     Dosage: 60 MG (60 MG,ON DAY 1 AND 7)
     Route: 042
     Dates: start: 20070404
  6. OMEPRAZOLE [Suspect]
     Dosage: 20 MG (20 MG,1 IN 1 D)
     Route: 048
  7. ENOXAPARIN SODIUM [Concomitant]
  8. ERGOCALCIFEROL [Concomitant]
  9. CALCIUM CHLORIDE [Concomitant]

REACTIONS (2)
  - CARDIAC MURMUR [None]
  - HYPERTROPHIC CARDIOMYOPATHY [None]
